FAERS Safety Report 16889717 (Version 1)
Quarter: 2019Q4

REPORT INFORMATION
  Report Type: Spontaneous
  Country: US (occurrence: US)
  Receive Date: 20191007
  Receipt Date: 20191007
  Transmission Date: 20200122
  Serious: Yes (Hospitalization, Other)
  Sender: FDA-Public Use
  Company Number: US-TORRENT-00009282

PATIENT
  Sex: Female
  Weight: 70 kg

DRUGS (2)
  1. LOSARTAN AND HYDROCHLOROTHIAZIDE [Suspect]
     Active Substance: HYDROCHLOROTHIAZIDE\LOSARTAN POTASSIUM
     Indication: PRODUCT USED FOR UNKNOWN INDICATION
     Dosage: OVER 10 YEARS
     Dates: start: 2009
  2. LOSARTAN AND HYDROCHLOROTHIAZIDE [Suspect]
     Active Substance: HYDROCHLOROTHIAZIDE\LOSARTAN POTASSIUM
     Indication: PRODUCT USED FOR UNKNOWN INDICATION
     Dosage: UNKNOWN
     Dates: start: 2019

REACTIONS (13)
  - Dry throat [Not Recovered/Not Resolved]
  - Weight loss poor [Not Recovered/Not Resolved]
  - Arthralgia [Not Recovered/Not Resolved]
  - Dyspnoea [Not Recovered/Not Resolved]
  - Hypoaesthesia [Not Recovered/Not Resolved]
  - Breath sounds abnormal [Not Recovered/Not Resolved]
  - Breast prosthesis implantation [Unknown]
  - Breast conserving surgery [Unknown]
  - Breast pain [Unknown]
  - Dizziness [Unknown]
  - Breast cancer [Recovered/Resolved]
  - Breast haematoma [Unknown]
  - Macular degeneration [Unknown]

NARRATIVE: CASE EVENT DATE: 2013
